FAERS Safety Report 23843062 (Version 1)
Quarter: 2024Q2

REPORT INFORMATION
  Report Type: Other
  Country: IN (occurrence: IN)
  Receive Date: 20240510
  Receipt Date: 20240510
  Transmission Date: 20240716
  Serious: Yes (Life-Threatening)
  Sender: FDA-Public Use
  Company Number: IN-B.Braun Medical Inc.-2156852

PATIENT
  Age: 22 Year
  Sex: Male

DRUGS (6)
  1. BUPIVACAINE HYDROCHLORIDE [Suspect]
     Active Substance: BUPIVACAINE HYDROCHLORIDE\BUPIVACAINE HYDROCHLORIDE ANHYDROUS
     Indication: Spinal anaesthesia
  2. CHLORHEXIDINE [Suspect]
     Active Substance: CHLORHEXIDINE\CHLORHEXIDINE GLUCONATE
  3. PHENYLEPHRINE [Concomitant]
     Active Substance: PHENYLEPHRINE HYDROCHLORIDE
  4. CEFAZOLIN [Concomitant]
     Active Substance: CEFAZOLIN
  5. ISOPROPYL ALCOHOL [Concomitant]
     Active Substance: ISOPROPYL ALCOHOL
  6. FENTANYL [Concomitant]
     Active Substance: FENTANYL\FENTANYL CITRATE

REACTIONS (1)
  - Meningitis aseptic [Recovered/Resolved]
